FAERS Safety Report 9029181 (Version 1)
Quarter: 2013Q1

REPORT INFORMATION
  Report Type: Spontaneous
  Country: GB (occurrence: GB)
  Receive Date: 20130125
  Receipt Date: 20130125
  Transmission Date: 20140127
  Serious: Yes (Other)
  Sender: FDA-Public Use
  Company Number: GB-JNJFOC-20130109232

PATIENT
  Age: 25 Year
  Sex: Female
  Weight: 54.43 kg

DRUGS (4)
  1. TOPIRAMATE [Suspect]
     Indication: MIGRAINE
     Route: 048
     Dates: start: 20091212, end: 20110809
  2. ETHINYLESTRADIOL [Concomitant]
     Route: 065
  3. MAXALT [Concomitant]
     Route: 065
  4. NORGESTIMATE [Concomitant]
     Route: 065

REACTIONS (4)
  - Decreased appetite [Recovered/Resolved]
  - Memory impairment [Recovered/Resolved]
  - Mental impairment [Unknown]
  - Weight decreased [Recovered/Resolved with Sequelae]
